FAERS Safety Report 17966253 (Version 2)
Quarter: 2020Q3

REPORT INFORMATION
  Report Type: Report from Study
  Country: US (occurrence: US)
  Receive Date: 20200701
  Receipt Date: 20200708
  Transmission Date: 20201103
  Serious: Yes (Other)
  Sender: FDA-Public Use
  Company Number: US-GILEAD-2020-0454189

PATIENT
  Age: 29 Year
  Sex: Female
  Weight: 74 kg

DRUGS (12)
  1. AMBRISENTAN [Suspect]
     Active Substance: AMBRISENTAN
     Indication: PULMONARY ARTERIAL HYPERTENSION
     Dosage: 10 MG, QD
     Route: 048
     Dates: start: 20200121
  2. UPTRAVI [Suspect]
     Active Substance: SELEXIPAG
     Dosage: 1200 UG, BID
     Route: 065
     Dates: start: 202006
  3. ADCIRCA [Concomitant]
     Active Substance: TADALAFIL
  4. UPTRAVI [Suspect]
     Active Substance: SELEXIPAG
     Dosage: 1000 UG
     Route: 065
     Dates: start: 20200424
  5. UPTRAVI [Suspect]
     Active Substance: SELEXIPAG
     Dosage: 1200 UG, BID
     Route: 065
     Dates: start: 20200513
  6. UPTRAVI [Suspect]
     Active Substance: SELEXIPAG
     Dosage: 1400 UG, BID
     Route: 065
     Dates: start: 20200527
  7. UPTRAVI [Suspect]
     Active Substance: SELEXIPAG
     Dosage: 1600 UG, BID
     Route: 065
     Dates: start: 20200610
  8. UPTRAVI [Suspect]
     Active Substance: SELEXIPAG
     Dosage: 1400 UG, BID
     Route: 065
     Dates: start: 20200619
  9. UPTRAVI [Suspect]
     Active Substance: SELEXIPAG
     Indication: PRODUCT USED FOR UNKNOWN INDICATION
     Dosage: UNK
     Route: 065
     Dates: start: 20200211
  10. UPTRAVI [Suspect]
     Active Substance: SELEXIPAG
     Dosage: 200 UG
     Route: 065
     Dates: start: 20200311
  11. UPTRAVI [Suspect]
     Active Substance: SELEXIPAG
     Dosage: 400 UG
     Route: 065
     Dates: start: 20200318
  12. UPTRAVI [Suspect]
     Active Substance: SELEXIPAG
     Dosage: 800 UG
     Route: 065

REACTIONS (20)
  - Malaise [Not Recovered/Not Resolved]
  - Catheterisation cardiac [Unknown]
  - Abdominal pain [Recovered/Resolved]
  - Diarrhoea [Not Recovered/Not Resolved]
  - Pulmonary hypertension [Unknown]
  - Pain in jaw [Recovering/Resolving]
  - Muscular weakness [Not Recovered/Not Resolved]
  - Grip strength decreased [Unknown]
  - Flushing [Not Recovered/Not Resolved]
  - Headache [Recovered/Resolved]
  - Dyspnoea exertional [Unknown]
  - Gingival pruritus [Unknown]
  - Heart rate increased [Unknown]
  - Abdominal pain upper [Not Recovered/Not Resolved]
  - Headache [Recovering/Resolving]
  - Abdominal distension [Unknown]
  - Irregular breathing [Unknown]
  - Muscle spasms [Not Recovered/Not Resolved]
  - Fatigue [Not Recovered/Not Resolved]
  - Nausea [Recovered/Resolved]

NARRATIVE: CASE EVENT DATE: 202003
